FAERS Safety Report 13746123 (Version 1)
Quarter: 2017Q3

REPORT INFORMATION
  Report Type: Spontaneous
  Country: US (occurrence: US)
  Receive Date: 20170712
  Receipt Date: 20170712
  Transmission Date: 20171127
  Serious: Yes (Other)
  Sender: FDA-Public Use
  Company Number: None

PATIENT
  Age: 27 Year
  Sex: Female
  Weight: 81 kg

DRUGS (2)
  1. FLAGYL [Suspect]
     Active Substance: METRONIDAZOLE\METRONIDAZOLE HYDROCHLORIDE
     Indication: TRICHOMONIASIS
     Dosage: ?          OTHER STRENGTH:MG;QUANTITY:1 TABLET(S);?
     Route: 048
     Dates: start: 20170705, end: 20170712
  2. FLAGYL [Suspect]
     Active Substance: METRONIDAZOLE\METRONIDAZOLE HYDROCHLORIDE
     Indication: BACTERIAL VAGINOSIS
     Dosage: ?          OTHER STRENGTH:MG;QUANTITY:1 TABLET(S);?
     Route: 048
     Dates: start: 20170705, end: 20170712

REACTIONS (13)
  - Eye pain [None]
  - Decreased appetite [None]
  - Blister [None]
  - Diarrhoea [None]
  - Lip pain [None]
  - Fatigue [None]
  - Impaired driving ability [None]
  - Decreased activity [None]
  - Emotional disorder [None]
  - Migraine [None]
  - Influenza [None]
  - Anxiety [None]
  - Eye irritation [None]

NARRATIVE: CASE EVENT DATE: 20170709
